FAERS Safety Report 24764138 (Version 1)
Quarter: 2024Q4

REPORT INFORMATION
  Report Type: Spontaneous
  Country: US (occurrence: US)
  Receive Date: 20241223
  Receipt Date: 20241223
  Transmission Date: 20250114
  Serious: Yes (Other)
  Sender: RUBICON RESEARCH
  Company Number: US-Rubicon research Pvt ltd-2024000080

PATIENT
  Sex: Male
  Weight: 79 kg

DRUGS (1)
  1. CLONAZEPAM [Suspect]
     Active Substance: CLONAZEPAM
     Indication: Product used for unknown indication
     Route: 065

REACTIONS (9)
  - Seizure [Unknown]
  - Illness [Unknown]
  - Chills [Unknown]
  - Heart rate increased [Unknown]
  - Hyperhidrosis [Unknown]
  - Anxiety [Unknown]
  - Headache [Unknown]
  - Drug ineffective [Unknown]
  - Product substitution issue [Unknown]
